FAERS Safety Report 11370181 (Version 4)
Quarter: 2016Q4

REPORT INFORMATION
  Report Type: Report from Study
  Country: DE (occurrence: DE)
  Receive Date: 20150812
  Receipt Date: 20161109
  Transmission Date: 20170206
  Serious: No
  Sender: FDA-Public Use
  Company Number: DE-UCBSA-2015025041

PATIENT
  Age: 24 Year
  Sex: Male
  Weight: 90 kg

DRUGS (1)
  1. CERTOLIZUMAB PEGOL [Suspect]
     Active Substance: CERTOLIZUMAB PEGOL
     Indication: PSORIASIS
     Dosage: UNK

REACTIONS (1)
  - Tooth abscess [Recovered/Resolved]

NARRATIVE: CASE EVENT DATE: 20150722
